FAERS Safety Report 22154277 (Version 1)
Quarter: 2023Q1

REPORT INFORMATION
  Report Type: Other
  Country: ES (occurrence: ES)
  Receive Date: 20230330
  Receipt Date: 20230330
  Transmission Date: 20230417
  Serious: Yes (Other)
  Sender: FDA-Public Use
  Company Number: ES-AEMPS-667583

PATIENT
  Age: 49 Year
  Sex: Female
  Weight: 48.2 kg

DRUGS (3)
  1. TACROLIMUS [Suspect]
     Active Substance: TACROLIMUS
     Indication: Bone marrow transplant
     Dosage: 4.5-0-4.5, QD
     Route: 048
     Dates: start: 20200227, end: 20200511
  2. VALCYTE [Concomitant]
     Active Substance: VALGANCICLOVIR HYDROCHLORIDE
     Indication: Product used for unknown indication
     Dosage: 900 MILLIGRAM, BID
     Dates: start: 20200409
  3. EPOETINA [Concomitant]
     Indication: Product used for unknown indication
     Dosage: UNK, ONCE A WEEK

REACTIONS (4)
  - Neuralgia [Recovered/Resolved]
  - Neuropathy peripheral [Recovered/Resolved]
  - Asthenia [Recovered/Resolved]
  - Off label use [Unknown]

NARRATIVE: CASE EVENT DATE: 20200420
